FAERS Safety Report 22123770 (Version 1)
Quarter: 2023Q1

REPORT INFORMATION
  Report Type: Report from Study
  Country: US (occurrence: None)
  Receive Date: 20230322
  Receipt Date: 20230322
  Transmission Date: 20230417
  Serious: Yes (Other)
  Sender: FDA-Public Use
  Company Number: US-ROCHE-3313290

PATIENT

DRUGS (1)
  1. TOCILIZUMAB [Suspect]
     Active Substance: TOCILIZUMAB
     Indication: Malignant melanoma
     Route: 042
     Dates: start: 20200323, end: 20200415

REACTIONS (1)
  - Lipase increased [Unknown]
